FAERS Safety Report 7366988-4 (Version None)
Quarter: 2011Q1

REPORT INFORMATION
  Report Type: 
  Country: None (occurrence: None)
  Receive Date: 20110310
  Receipt Date: 20110301
  Transmission Date: 20110831
  Serious: Yes (Death)
  Sender: FDA-Public Use
  Company Number: 845923

PATIENT
  Age: 15 Year
  Sex: Male
  Weight: 55 kg

DRUGS (23)
  1. CLOXACILLIN SODIUM [Concomitant]
  2. (METHYLPREDNISOLONE) [Suspect]
     Indication: INFLAMMATION
     Dosage: 60 MG EVERY 6 HOURS FOR 5 DAYS INTRAVENOUS; 30 MG EVERY 6 HOURS FOR THE FOLLOWING 5 DAYS INTRAVENOUS
     Dates: start: 20080101, end: 20080101
  3. TOBRAMYCIN [Concomitant]
  4. AMPHOTERICIN B [Concomitant]
  5. (DIGESTIVE ENZYMES) [Concomitant]
  6. CEFTAZIDIME [Concomitant]
  7. (PROTON PUMP INHIBITORS) [Concomitant]
  8. (OXYGEN) [Concomitant]
  9. OSELTAMIVIR [Concomitant]
  10. ALBUMIN (HUMAN) [Concomitant]
  11. (I.V. SOLUTIONS) [Concomitant]
  12. MEROPENEM [Concomitant]
  13. DOPAMINE HYDROCHLORIDE [Concomitant]
  14. EPINEPHRINE [Concomitant]
  15. (DEOXYRIBONUCLEASE, BOVINE) [Concomitant]
  16. (VITAMINS NOS) [Concomitant]
  17. LEVOFLOXACIN [Concomitant]
  18. TRIMETHOPRIM + SULFAMETHOXAZOLE [Concomitant]
  19. AMPHOTERICIN B [Concomitant]
  20. CIPROFLOXACIN [Concomitant]
  21. VANCOMYCIN HYDROCHLORIDE [Concomitant]
  22. (NORADRENALINE TARTRATE) [Concomitant]
  23. (HYDROCORTISONE) [Concomitant]

REACTIONS (13)
  - SPUTUM DISCOLOURED [None]
  - SPUTUM CULTURE POSITIVE [None]
  - DYSPNOEA [None]
  - HYPOTENSION [None]
  - TACHYPNOEA [None]
  - PNEUMOTHORAX [None]
  - PNEUMONIA NECROTISING [None]
  - STENOTROPHOMONAS INFECTION [None]
  - BRONCHOPULMONARY ASPERGILLOSIS [None]
  - PULMONARY HAEMORRHAGE [None]
  - LUNG INFECTION PSEUDOMONAL [None]
  - ASPERGILLOSIS [None]
  - ABSCESS FUNGAL [None]
